FAERS Safety Report 4279480-0 (Version None)
Quarter: 2004Q1

REPORT INFORMATION
  Report Type: 
  Country: None (occurrence: None)
  Receive Date: 20040127
  Receipt Date: 20040115
  Transmission Date: 20041129
  Serious: Yes (Hospitalization)
  Sender: FDA-Public Use
  Company Number: FR-GLAXOSMITHKLINE-B0320034A

PATIENT
  Sex: Male

DRUGS (1)
  1. BUSULFAN [Suspect]
     Indication: LEUKAEMIA
     Dosage: 1.2MGK PER DAY
     Route: 042
     Dates: start: 20031230

REACTIONS (1)
  - RASH [None]
